FAERS Safety Report 9842109 (Version 1)
Quarter: 2014Q1

REPORT INFORMATION
  Report Type: Spontaneous
  Country: FR (occurrence: FR)
  Receive Date: 20140124
  Receipt Date: 20140124
  Transmission Date: 20141002
  Serious: Yes (Hospitalization)
  Sender: FDA-Public Use
  Company Number: FR-PFIZER INC-2014019308

PATIENT
  Age: 72 Year
  Sex: Male

DRUGS (14)
  1. ALDACTONE [Suspect]
     Dosage: 25 MG, 1X/DAY
     Route: 048
     Dates: end: 20131126
  2. TRIATEC [Interacting]
     Dosage: 2.5 MG, DAILY
     Route: 048
     Dates: end: 20131123
  3. BURINEX [Interacting]
     Indication: ACUTE PULMONARY OEDEMA
     Dosage: 2 MG, DAILY
  4. BURINEX [Interacting]
     Dosage: 3 MG, SINGLE
     Route: 042
     Dates: start: 20131122, end: 20131122
  5. FUROSEMIDE RENAUDIN [Interacting]
     Indication: ACUTE PULMONARY OEDEMA
     Dosage: 500 MG/24 HOURS
     Route: 041
     Dates: start: 20131122, end: 20131123
  6. CORDARONE [Concomitant]
  7. CARDENSIEL [Concomitant]
  8. PLAVIX [Concomitant]
  9. PREVISCAN [Concomitant]
  10. CRESTOR [Concomitant]
  11. ZYLORIC [Concomitant]
  12. LEVOTHYROX [Concomitant]
  13. INEXIUM [Concomitant]
  14. LASILIX [Concomitant]
     Dosage: 80 MG, 2X/DAY

REACTIONS (3)
  - Renal failure [Recovered/Resolved]
  - Dehydration [Recovered/Resolved]
  - Drug interaction [Recovered/Resolved]
